FAERS Safety Report 6147428-X (Version None)
Quarter: 2009Q2

REPORT INFORMATION
  Report Type: 
  Country: None (occurrence: None)
  Receive Date: 20090408
  Receipt Date: 20090402
  Transmission Date: 20091009
  Serious: Yes (Hospitalization)
  Sender: FDA-Public Use
  Company Number: JP-ASTRAZENECA-2008SE05595

PATIENT
  Age: 78 Year
  Sex: Male
  Weight: 65 kg

DRUGS (13)
  1. BLOPRESS [Suspect]
     Indication: CARDIAC FAILURE CHRONIC
     Route: 048
     Dates: start: 20070711
  2. LASIX [Concomitant]
     Indication: CARDIAC FAILURE CHRONIC
     Route: 048
     Dates: start: 20040301
  3. LUPRAC [Concomitant]
     Indication: CARDIAC FAILURE CHRONIC
     Route: 048
     Dates: start: 20080508
  4. DIART [Concomitant]
     Indication: CARDIAC FAILURE CHRONIC
     Route: 048
     Dates: start: 20010101
  5. DIGOSIN [Concomitant]
     Indication: CARDIAC FAILURE CHRONIC
     Route: 048
     Dates: start: 20030303
  6. ITOROL [Concomitant]
     Indication: ANGINA PECTORIS
     Route: 048
     Dates: start: 20030317
  7. NORVASC [Concomitant]
     Indication: HYPERTENSION
     Route: 048
     Dates: start: 20010101
  8. ASPIRIN [Concomitant]
     Indication: ANGINA PECTORIS
     Route: 048
     Dates: start: 20010101
  9. KIPRES [Concomitant]
     Indication: ASTHMA
     Route: 048
     Dates: start: 20060220
  10. ZYLORIC [Concomitant]
     Indication: HYPERURICAEMIA
     Route: 048
     Dates: start: 20070307
  11. MEPTIN-MINI [Concomitant]
     Indication: ASTHMA
     Route: 048
     Dates: start: 20061211
  12. MUCOSOLVAN [Concomitant]
     Indication: ASTHMA
     Route: 048
     Dates: start: 20061211
  13. FRANDOL TAPE S [Concomitant]
     Indication: ANGINA PECTORIS
     Route: 062
     Dates: start: 20010101

REACTIONS (4)
  - CONSTIPATION [None]
  - INSOMNIA [None]
  - OSTEOARTHRITIS [None]
  - SPINAL COMPRESSION FRACTURE [None]
